FAERS Safety Report 7444923-8 (Version None)
Quarter: 2011Q2

REPORT INFORMATION
  Report Type: 
  Country: None (occurrence: None)
  Receive Date: 20110429
  Receipt Date: 20110425
  Transmission Date: 20111010
  Serious: Yes (Death)
  Sender: FDA-Public Use
  Company Number: MX-BRISTOL-MYERS SQUIBB COMPANY-15694714

PATIENT
  Age: 65 Year
  Sex: Female

DRUGS (1)
  1. IXEMPRYA [Suspect]
     Indication: BREAST CANCER METASTATIC
     Dates: start: 20110411

REACTIONS (1)
  - DEATH [None]
